FAERS Safety Report 26106792 (Version 1)
Quarter: 2025Q4

REPORT INFORMATION
  Report Type: Spontaneous
  Country: EU (occurrence: EU)
  Receive Date: 20251201
  Receipt Date: 20251201
  Transmission Date: 20260117
  Serious: Yes (Other)
  Sender: MERCK SHARP & DOHME LLC
  Company Number: None

PATIENT
  Age: 62 Year
  Sex: Female
  Weight: 96 kg

DRUGS (13)
  1. KEYTRUDA [Suspect]
     Active Substance: PEMBROLIZUMAB
     Indication: Breast cancer stage III
     Dosage: 200MG IN 100ML OF NACL 0.9% EVERY 3W
     Route: 042
     Dates: start: 20240918
  2. APREPITANT TEVA [Concomitant]
     Indication: Prophylaxis of nausea and vomiting
     Dosage: 125MG X 1 TIME/DAY 1ST DAY  ?80 MG X 1 TIME/DAY 2ND AND 3RD DAY OF CHEMOTHERAPY
     Route: 048
  3. TRIMETON [Concomitant]
     Active Substance: CHLORPHENIRAMINE MALEATE
     Indication: Chemotherapy side effect prophylaxis
     Dosage: 10MG IN 100ML OF NACL 0.9%
     Route: 042
  4. PALONOSETRON HYDROCHLORIDE [Concomitant]
     Active Substance: PALONOSETRON HYDROCHLORIDE
     Indication: Prophylaxis of nausea and vomiting
     Dosage: 250MCG X 1TIME/DAY
     Route: 048
  5. CARBOPLATIN [Concomitant]
     Active Substance: CARBOPLATIN
     Indication: Breast cancer stage III
     Dosage: 1.5MG/AUC IN 250ML OF 5% GLUCOSE EVERY WEEK
     Route: 042
     Dates: start: 20240918, end: 20241120
  6. CIPRALEX [Concomitant]
     Active Substance: ESCITALOPRAM OXALATE
     Indication: Depression
     Dosage: UNKNOWN DOSAGE X 1 TIME/DAY
     Route: 048
  7. DOXORUBICIN [Concomitant]
     Active Substance: DOXORUBICIN
     Indication: Breast cancer stage III
     Dosage: 60MG/M? IN 250ML OF NACL 0.9% EVERY 3W
     Dates: start: 20241218, end: 20250224
  8. CYCLOPHOSPHAMIDE [Concomitant]
     Active Substance: CYCLOPHOSPHAMIDE
     Indication: Breast cancer stage III
     Dosage: 600MG/M? IN 250ML OF 5% GLUCOSE SOLUTION EVERY 3W
     Route: 042
     Dates: start: 20241218, end: 20250224
  9. DEXAMETHASONE [Concomitant]
     Active Substance: DEXAMETHASONE
     Indication: Chemotherapy side effect prophylaxis
     Dosage: 20MG IN INFUSION
     Route: 042
  10. PACLITAXEL [Concomitant]
     Active Substance: PACLITAXEL
     Indication: Breast cancer stage III
     Dosage: 80MG/M? IN 250ML OF NACL 0.9% EVERY WEEK
     Route: 042
     Dates: start: 20240918, end: 20241120
  11. ONDANSETRON [Concomitant]
     Active Substance: ONDANSETRON
     Indication: Prophylaxis of nausea and vomiting
     Dosage: 8MG IN 100ML OF 0.9% NACL
     Route: 042
  12. AMLODIPINE\INDAPAMIDE\PERINDOPRIL [Concomitant]
     Active Substance: AMLODIPINE\INDAPAMIDE\PERINDOPRIL
     Indication: Hypertension
     Dosage: 8+2.5+5MG X 1TIME/DAY
     Route: 048
  13. BISOPROLOL FUMARATE [Concomitant]
     Active Substance: BISOPROLOL FUMARATE
     Indication: Hypertension
     Dosage: 5MG X 1 TIME/DAY
     Route: 048

REACTIONS (3)
  - Leukopenia [Recovered/Resolved]
  - Pruritus [Recovered/Resolved]
  - Decreased appetite [Recovered/Resolved]

NARRATIVE: CASE EVENT DATE: 20241030
